FAERS Safety Report 9851823 (Version 1)
Quarter: 2014Q1

REPORT INFORMATION
  Report Type: Spontaneous
  Country: US (occurrence: None)
  Receive Date: 20140127
  Receipt Date: 20140127
  Transmission Date: 20141002
  Serious: No
  Sender: FDA-Public Use
  Company Number: 2013AP010803

PATIENT
  Age: 9 Year
  Sex: Male
  Weight: 34 kg

DRUGS (6)
  1. FERRIPROX [Suspect]
     Indication: HAEMOCHROMATOSIS
     Route: 048
     Dates: start: 20131121, end: 20131207
  2. MORPHINE [Concomitant]
  3. SINGULAIR [Concomitant]
  4. ADVAIR [Concomitant]
  5. PROAIR [Concomitant]
  6. DESFERAL [Concomitant]

REACTIONS (1)
  - Alanine aminotransferase increased [None]
